FAERS Safety Report 24578794 (Version 1)
Quarter: 2024Q4

REPORT INFORMATION
  Report Type: Spontaneous
  Country: CN (occurrence: CN)
  Receive Date: 20241105
  Receipt Date: 20241105
  Transmission Date: 20250115
  Serious: Yes (Death)
  Sender: Teyro Labs
  Company Number: CN-TEYRO-2024-TY-000787

PATIENT
  Age: 59 Year
  Sex: Male

DRUGS (5)
  1. GEMCITABINE [Suspect]
     Active Substance: GEMCITABINE
     Indication: Ductal adenocarcinoma of pancreas
     Dosage: 1000 MG/M2 ON DAYS 1 AND 8, EVERY 3 WEEKS
     Route: 065
  2. PACLITAXEL [Suspect]
     Active Substance: PACLITAXEL
     Indication: Ductal adenocarcinoma of pancreas
     Dosage: 125 MG/M2 ON DAYS 1 AND 8, EVERY 3 WEEKS
     Route: 065
  3. SERPLULIMAB [Suspect]
     Active Substance: SERPLULIMAB
     Indication: Ductal adenocarcinoma of pancreas
     Dosage: 200 MG ON DAY 1, EVERY 3 WEEKS
     Route: 065
  4. SERPLULIMAB [Suspect]
     Active Substance: SERPLULIMAB
     Dosage: UNK
     Route: 065
  5. SERPLULIMAB [Suspect]
     Active Substance: SERPLULIMAB
     Dosage: UNK
     Route: 065

REACTIONS (1)
  - Tumour hyperprogression [Fatal]
